FAERS Safety Report 19264278 (Version 1)
Quarter: 2021Q2

REPORT INFORMATION
  Report Type: Spontaneous
  Country: US (occurrence: US)
  Receive Date: 20210515
  Receipt Date: 20210515
  Transmission Date: 20210717
  Serious: Yes (Other)
  Sender: FDA-Public Use
  Company Number: None

PATIENT
  Age: 62 Year
  Sex: Male
  Weight: 87.75 kg

DRUGS (14)
  1. ROSUVASTATIN. [Concomitant]
     Active Substance: ROSUVASTATIN
  2. TADALAFIL. [Concomitant]
     Active Substance: TADALAFIL
  3. FISH OIL [Concomitant]
     Active Substance: FISH OIL
  4. VITAMIN E [Concomitant]
     Active Substance: .ALPHA.-TOCOPHEROL
  5. FUROSEMIDE 20 MG TABLET [Suspect]
     Active Substance: FUROSEMIDE
     Indication: HYPERTENSION
     Dosage: ?          QUANTITY:1 TABLET(S);?
     Route: 048
     Dates: start: 20210512
  6. TURMERIC [Concomitant]
     Active Substance: HERBALS\TURMERIC
  7. LISINOPRIL. [Concomitant]
     Active Substance: LISINOPRIL
  8. CPAP [Concomitant]
     Active Substance: DEVICE
  9. ASPIRIN. [Concomitant]
     Active Substance: ASPIRIN
  10. MULTI VITAMIN [Concomitant]
     Active Substance: VITAMINS
  11. PROBIOTIC [Concomitant]
     Active Substance: PROBIOTICS NOS
  12. TAMSULOSIN [Concomitant]
     Active Substance: TAMSULOSIN
  13. VITAMIN D3 [Concomitant]
     Active Substance: CHOLECALCIFEROL
  14. VITAMIN C [Concomitant]
     Active Substance: ASCORBIC ACID

REACTIONS (1)
  - Drug ineffective [None]

NARRATIVE: CASE EVENT DATE: 20210512
